FAERS Safety Report 9159404 (Version 3)
Quarter: 2013Q1

REPORT INFORMATION
  Report Type: Spontaneous
  Country: US (occurrence: None)
  Receive Date: 20130213
  Receipt Date: 20130308
  Transmission Date: 20140127
  Serious: Yes (Other)
  Sender: FDA-Public Use
  Company Number: JPI-P-029577

PATIENT
  Age: 19 Year
  Sex: Female
  Weight: 48.08 kg

DRUGS (13)
  1. XYREM (500 MILLIGRAM/MILLILITERS, SOLUTION) (SODIUM OXYBATE) [Suspect]
     Indication: NARCOLEPSY
     Dosage: 5 GM (2.5 GM, 2 IN 1 D), ORAL
     Route: 048
     Dates: start: 20121109
  2. XYREM (500 MILLIGRAM/MILLILITERS, SOLUTION) (SODIUM OXYBATE) [Suspect]
     Indication: SOMNOLENCE
     Dosage: 5 GM (2.5 GM, 2 IN 1 D), ORAL
     Route: 048
     Dates: start: 20121109
  3. XYREM (500 MILLIGRAM/MILLILITERS, SOLUTION) (SODIUM OXYBATE) [Suspect]
     Indication: CHRONIC FATIGUE SYNDROME
     Dosage: 5 GM (2.5 GM, 2 IN 1 D), ORAL
     Route: 048
     Dates: start: 20121109
  4. LORATADINE [Concomitant]
  5. MONTELUKAST SODIUM [Concomitant]
  6. SIMETHICONE [Concomitant]
  7. MOMETASONE FUROATE, FORMOTEROL FUMRATE DIHYDRATE [Concomitant]
  8. FLUTICASONE [Concomitant]
  9. CALCIUM [Concomitant]
  10. MULTIVITAMIN [Concomitant]
  11. RANITIDINE [Concomitant]
  12. TRIAMCINOLONE ACETATE [Concomitant]
  13. PREDNISONE [Concomitant]

REACTIONS (17)
  - Pain in extremity [None]
  - Oedema peripheral [None]
  - Pain in extremity [None]
  - Skin discolouration [None]
  - Dizziness [None]
  - Muscular weakness [None]
  - Somnolence [None]
  - Drug administration error [None]
  - Nausea [None]
  - Vomiting [None]
  - Myalgia [None]
  - Arthritis [None]
  - Pain [None]
  - Poor quality sleep [None]
  - Insomnia [None]
  - Initial insomnia [None]
  - Walking aid user [None]
